FAERS Safety Report 24860403 (Version 2)
Quarter: 2025Q1

REPORT INFORMATION
  Report Type: Report from Study
  Country: US (occurrence: US)
  Receive Date: 20250120
  Receipt Date: 20250205
  Transmission Date: 20250409
  Serious: Yes (Hospitalization)
  Sender: EMD SERONO INC
  Company Number: US-Merck Healthcare KGaA-2025001909

PATIENT
  Age: 63 Year
  Sex: Male

DRUGS (3)
  1. MAVENCLAD [Suspect]
     Active Substance: CLADRIBINE
     Indication: Multiple sclerosis
  2. MAVENCLAD [Suspect]
     Active Substance: CLADRIBINE
  3. MAVENCLAD [Suspect]
     Active Substance: CLADRIBINE

REACTIONS (6)
  - Dehydration [Unknown]
  - Oesophagitis [Recovering/Resolving]
  - Sepsis [Unknown]
  - Kidney infection [Recovered/Resolved]
  - Urinary tract infection [Unknown]
  - Weight decreased [Unknown]

NARRATIVE: CASE EVENT DATE: 20250104
